FAERS Safety Report 15552852 (Version 1)
Quarter: 2018Q4

REPORT INFORMATION
  Report Type: Spontaneous
  Country: US (occurrence: US)
  Receive Date: 20181025
  Receipt Date: 20181025
  Transmission Date: 20190205
  Serious: No
  Sender: FDA-Public Use
  Company Number: US-ASTRAZENECA-2018SF28316

PATIENT
  Sex: Female

DRUGS (1)
  1. FASLODEX [Suspect]
     Active Substance: FULVESTRANT
     Dosage: EVERY FOUR WEEKS
     Route: 030

REACTIONS (4)
  - Injection site pain [Unknown]
  - Walking disability [Unknown]
  - Pain in extremity [Unknown]
  - Myalgia [Unknown]
